FAERS Safety Report 20932996 (Version 2)
Quarter: 2022Q3

REPORT INFORMATION
  Report Type: Spontaneous
  Country: US (occurrence: US)
  Receive Date: 20220608
  Receipt Date: 20220711
  Transmission Date: 20221026
  Serious: Yes (Disabling, Other)
  Sender: FDA-Public Use
  Company Number: US-REGENERON PHARMACEUTICALS, INC.-2022-30806

PATIENT
  Sex: Male

DRUGS (2)
  1. EYLEA [Suspect]
     Active Substance: AFLIBERCEPT
     Indication: Diabetic retinopathy
     Dosage: 2 MG, EVERY 4 -6 WEEKS (AS NEEDED), INTO LEFT EYE; FORMULATION: INJECTION
     Dates: start: 20220223
  2. EYLEA [Suspect]
     Active Substance: AFLIBERCEPT
     Indication: Macular oedema

REACTIONS (4)
  - Blindness [Unknown]
  - Cataract [Unknown]
  - Therapeutic response shortened [Unknown]
  - Deposit eye [Unknown]

NARRATIVE: CASE EVENT DATE: 20220101
